FAERS Safety Report 21765956 (Version 1)
Quarter: 2022Q4

REPORT INFORMATION
  Report Type: Spontaneous
  Country: US (occurrence: None)
  Receive Date: 20221221
  Receipt Date: 20221221
  Transmission Date: 20230112
  Serious: No
  Sender: FDA-Public Use
  Company Number: None

PATIENT
  Age: 84 Year
  Sex: Male
  Weight: 72 kg

DRUGS (1)
  1. DULOXETINE [Suspect]
     Active Substance: DULOXETINE
     Indication: Neuropathy peripheral
     Dosage: OTHER QUANTITY : 30 CAPSULE(S);?FREQUENCY : DAILY;?
     Route: 048
     Dates: start: 20121219, end: 20121220

REACTIONS (5)
  - Abdominal discomfort [None]
  - Diarrhoea [None]
  - Headache [None]
  - Dizziness [None]
  - Therapy cessation [None]

NARRATIVE: CASE EVENT DATE: 20221220
